FAERS Safety Report 23093895 (Version 2)
Quarter: 2023Q4

REPORT INFORMATION
  Report Type: Report from Study
  Country: US (occurrence: US)
  Receive Date: 20231023
  Receipt Date: 20231031
  Transmission Date: 20240110
  Serious: Yes (Other)
  Sender: FDA-Public Use
  Company Number: US-002147023-NVSC2023US224689

PATIENT
  Sex: Female

DRUGS (1)
  1. GILENYA [Suspect]
     Active Substance: FINGOLIMOD HYDROCHLORIDE
     Indication: Relapsing multiple sclerosis
     Dosage: UNK
     Route: 065

REACTIONS (9)
  - Renal cancer [Unknown]
  - Multiple sclerosis relapse [Unknown]
  - Condition aggravated [Unknown]
  - Optic neuritis [Unknown]
  - Blindness unilateral [Recovered/Resolved]
  - Back pain [Unknown]
  - Malaise [Unknown]
  - Weight increased [Unknown]
  - JC polyomavirus test positive [Unknown]
